FAERS Safety Report 7834209-1 (Version None)
Quarter: 2011Q4

REPORT INFORMATION
  Report Type: 
  Country: None (occurrence: None)
  Receive Date: 20111024
  Receipt Date: 20111017
  Transmission Date: 20120403
  Serious: Yes (Other)
  Sender: FDA-Public Use
  Company Number: PHHO2011DE17599

PATIENT
  Sex: Male

DRUGS (7)
  1. CYCLOPHOSPHAMIDE [Suspect]
     Indication: EWING'S SARCOMA
     Dosage: 3 G, UNK
     Dates: start: 20100902, end: 20100927
  2. DOXORUBICIN HCL [Concomitant]
     Indication: EWING'S SARCOMA
     Dosage: 40 MG, UNK
     Dates: start: 20091029, end: 20100219
  3. DACTINOMYCIN [Concomitant]
     Indication: EWING'S SARCOMA
     Dosage: 1.5 MG, UNK
     Dates: start: 20100324, end: 20100928
  4. IFOSFAMIDE [Suspect]
     Indication: EWING'S SARCOMA
     Dosage: 6 MG, UNK
     Dates: start: 20091030, end: 20100806
  5. VINCRISTINE [Concomitant]
     Indication: EWING'S SARCOMA
     Dosage: 2 MG, UNK
     Route: 042
     Dates: start: 20091029, end: 20100927
  6. ZOMETA [Suspect]
     Indication: EWING'S SARCOMA
     Dosage: 4 MG, UNK
     Route: 042
     Dates: start: 20100805
  7. ETOPOSIDE [Concomitant]
     Indication: EWING'S SARCOMA
     Dosage: 300 MG, UNK
     Dates: start: 20091029, end: 20100707

REACTIONS (1)
  - RENAL TUBULAR DISORDER [None]
